FAERS Safety Report 5374799-4 (Version None)
Quarter: 2007Q2

REPORT INFORMATION
  Report Type: 
  Country: None (occurrence: None)
  Receive Date: 20070629
  Receipt Date: 20070625
  Transmission Date: 20071010
  Serious: Yes (Hospitalization)
  Sender: FDA-Public Use
  Company Number: A0642342B

PATIENT
  Sex: Female
  Weight: 2.1 kg

DRUGS (2)
  1. BUPROPION HYDROCHLORIDE [Suspect]
     Indication: MAJOR DEPRESSION
     Dosage: 200MG SEE DOSAGE TEXT
  2. PRENATAL VITAMINS [Concomitant]

REACTIONS (5)
  - ANOREXIA [None]
  - DRUG EXPOSURE DURING PREGNANCY [None]
  - POOR WEIGHT GAIN NEONATAL [None]
  - PREMATURE BABY [None]
  - SMALL FOR DATES BABY [None]
